FAERS Safety Report 21032279 (Version 1)
Quarter: 2022Q3

REPORT INFORMATION
  Report Type: Spontaneous
  Country: FR (occurrence: FR)
  Receive Date: 20220701
  Receipt Date: 20220701
  Transmission Date: 20221027
  Serious: Yes (Life-Threatening, Hospitalization)
  Sender: FDA-Public Use
  Company Number: None

PATIENT
  Age: 33 Year
  Sex: Female

DRUGS (3)
  1. QUETIAPINE [Suspect]
     Active Substance: QUETIAPINE
     Indication: Product used for unknown indication
  2. KETAMINE [Suspect]
     Active Substance: KETAMINE
     Indication: Product used for unknown indication
  3. PHENCYCLIDINE HYDROCHLORIDE [Suspect]
     Active Substance: PHENCYCLIDINE HYDROCHLORIDE
     Indication: Product used for unknown indication

REACTIONS (4)
  - Coma [Recovered/Resolved]
  - Tonic convulsion [Recovered/Resolved]
  - Rhabdomyolysis [Unknown]
  - Acute kidney injury [Unknown]

NARRATIVE: CASE EVENT DATE: 20220322
